FAERS Safety Report 12709570 (Version 3)
Quarter: 2016Q4

REPORT INFORMATION
  Report Type: Spontaneous
  Country: BD (occurrence: BD)
  Receive Date: 20160902
  Receipt Date: 20161006
  Transmission Date: 20170207
  Serious: Yes (Death, Life-Threatening)
  Sender: FDA-Public Use
  Company Number: BD-JNJFOC-20160825916

PATIENT
  Age: 52 Year
  Sex: Male
  Weight: 45 kg

DRUGS (12)
  1. ETHIONAMIDE [Suspect]
     Active Substance: ETHIONAMIDE
     Indication: TUBERCULOSIS
     Route: 048
     Dates: start: 20160625, end: 20160927
  2. PYRAZINAMIDE. [Suspect]
     Active Substance: PYRAZINAMIDE
     Indication: TUBERCULOSIS
     Route: 048
     Dates: start: 20160625, end: 20160927
  3. CAPREOMYCIN [Suspect]
     Active Substance: CAPREOMYCIN
     Indication: TUBERCULOSIS
     Route: 030
     Dates: start: 20160908, end: 20160925
  4. INSULIN W/ISOPHANE INSULIN [Concomitant]
     Indication: DIABETES MELLITUS
     Dosage: 100 IU 8+0+6,
     Route: 058
     Dates: start: 20160625
  5. LEVOFLOXACIN. [Suspect]
     Active Substance: LEVOFLOXACIN
     Indication: TUBERCULOSIS
     Route: 048
     Dates: start: 20160625, end: 20160927
  6. BEDAQUILINE [Suspect]
     Active Substance: BEDAQUILINE
     Indication: TUBERCULOSIS
     Route: 048
     Dates: start: 201608, end: 20160822
  7. CYCLOSERINE. [Suspect]
     Active Substance: CYCLOSERINE
     Indication: TUBERCULOSIS
     Route: 048
     Dates: start: 20160625, end: 20160927
  8. BEDAQUILINE [Suspect]
     Active Substance: BEDAQUILINE
     Indication: TUBERCULOSIS
     Route: 048
     Dates: start: 20160806, end: 20160819
  9. OMEPRAZOLE. [Concomitant]
     Active Substance: OMEPRAZOLE
     Indication: HYPERCHLORHYDRIA
     Route: 048
     Dates: start: 20160625
  10. DOMPERIDONE [Concomitant]
     Active Substance: DOMPERIDONE
     Indication: PROPHYLAXIS OF NAUSEA AND VOMITING
     Route: 048
     Dates: start: 20160625
  11. BETAHISTINE [Concomitant]
     Active Substance: BETAHISTINE
     Indication: TINNITUS
     Route: 048
     Dates: start: 20160625
  12. PYRIDOXINE [Concomitant]
     Active Substance: PYRIDOXINE
     Indication: PROPHYLAXIS
     Route: 048
     Dates: start: 20160625

REACTIONS (3)
  - Myocardial infarction [Fatal]
  - Electrocardiogram QT prolonged [Unknown]
  - Constipation [Unknown]

NARRATIVE: CASE EVENT DATE: 20160822
